FAERS Safety Report 4267177-2 (Version None)
Quarter: 2004Q1

REPORT INFORMATION
  Report Type: 
  Country: None (occurrence: None)
  Receive Date: 20040107
  Receipt Date: 20031222
  Transmission Date: 20041129
  Serious: Yes (Hospitalization)
  Sender: FDA-Public Use
  Company Number: 2003AP04458

PATIENT
  Age: 78 Year
  Sex: Male
  Weight: 53 kg

DRUGS (8)
  1. TENORMIN [Suspect]
     Indication: HYPERTROPHIC OBSTRUCTIVE CARDIOMYOPATHY
     Dosage: 25 MG DAILY PO
     Route: 048
     Dates: start: 20031129, end: 20031201
  2. TENORMIN [Suspect]
     Indication: MITRAL VALVE DISEASE
     Dosage: 25 MG DAILY PO
     Route: 048
     Dates: start: 20031129, end: 20031201
  3. TENORMIN [Suspect]
     Indication: HYPERTROPHIC OBSTRUCTIVE CARDIOMYOPATHY
     Dosage: 50 MG DAILY PO
     Route: 048
     Dates: start: 20031202, end: 20031202
  4. TENORMIN [Suspect]
     Indication: MITRAL VALVE DISEASE
     Dosage: 50 MG DAILY PO
     Route: 048
     Dates: start: 20031202, end: 20031202
  5. CONIEL [Concomitant]
  6. RIZE [Concomitant]
  7. ULCERLMIN [Concomitant]
  8. MAGNESIUM OXIDE [Concomitant]

REACTIONS (6)
  - ASTHMA [None]
  - ATRIOVENTRICULAR BLOCK COMPLETE [None]
  - ATRIOVENTRICULAR BLOCK FIRST DEGREE [None]
  - ATRIOVENTRICULAR BLOCK SECOND DEGREE [None]
  - CARDIAC ARREST [None]
  - DRUG EFFECT DECREASED [None]
